FAERS Safety Report 9051948 (Version 1)
Quarter: 2013Q1

REPORT INFORMATION
  Report Type: Spontaneous
  Country: US (occurrence: None)
  Receive Date: 20130130
  Receipt Date: 20130130
  Transmission Date: 20140127
  Serious: Yes (Death, Hospitalization)
  Sender: FDA-Public Use
  Company Number: None

PATIENT
  Sex: Female
  Weight: 34.6 kg

DRUGS (2)
  1. CYTARABINE [Suspect]
     Dates: end: 20121211
  2. MITOXANTRONE HYDROCHLORIDE [Suspect]
     Dates: end: 20121213

REACTIONS (12)
  - Pyrexia [None]
  - Neutropenia [None]
  - Stomatococcal infection [None]
  - Meningitis bacterial [None]
  - General physical health deterioration [None]
  - Brain oedema [None]
  - Brain herniation [None]
  - Hypotension [None]
  - Hypothermia [None]
  - Pupil fixed [None]
  - Cardiac arrest [None]
  - Back pain [None]
